FAERS Safety Report 4341293-9 (Version None)
Quarter: 2004Q1

REPORT INFORMATION
  Report Type: 
  Country: None (occurrence: None)
  Receive Date: 20040314
  Receipt Date: 20030610
  Transmission Date: 20041129
  Serious: Yes (Hospitalization)
  Sender: FDA-Public Use
  Company Number: 2003-BP-03979BP(0)

PATIENT
  Age: 66 Year
  Sex: Male
  Weight: 94.35 kg

DRUGS (6)
  1. MOBIC [Suspect]
     Indication: OSTEOARTHRITIS
     Dosage: 15 MG DAILY (7.5 MG, 15 MG)
     Dates: start: 20030415, end: 20030607
  2. ASPIRIN [Concomitant]
  3. HYZAAR [Concomitant]
  4. ATENOLOL [Concomitant]
  5. LIPITOR [Concomitant]
  6. DETROL LA [Concomitant]

REACTIONS (9)
  - ABDOMINAL PAIN [None]
  - ANAEMIA [None]
  - BLOOD CREATININE [None]
  - BLOOD UREA INCREASED [None]
  - GASTRIC HAEMORRHAGE [None]
  - GASTRITIS EROSIVE [None]
  - HAEMOGLOBIN DECREASED [None]
  - MELAENA [None]
  - SMALL INTESTINAL HAEMORRHAGE [None]
